FAERS Safety Report 7892700-6 (Version None)
Quarter: 2011Q4

REPORT INFORMATION
  Report Type: 
  Country: None (occurrence: None)
  Receive Date: 20111102
  Receipt Date: 20111026
  Transmission Date: 20120403
  Serious: Yes (Hospitalization, Other)
  Sender: FDA-Public Use
  Company Number: 2010SP038554

PATIENT
  Age: 31 Year
  Sex: Female
  Weight: 61.2356 kg

DRUGS (2)
  1. CHANTIX [Suspect]
     Indication: EX-TOBACCO USER
  2. NUVARING [Suspect]
     Indication: CONTRACEPTION
     Dates: start: 20070401, end: 20080901

REACTIONS (23)
  - PULMONARY EMBOLISM [None]
  - HEADACHE [None]
  - MENORRHAGIA [None]
  - DEVICE EXPULSION [None]
  - SUPERINFECTION [None]
  - SKIN INFECTION [None]
  - URINARY TRACT INFECTION [None]
  - NAUSEA [None]
  - DRUG INTOLERANCE [None]
  - ALOPECIA [None]
  - HYPERTENSION [None]
  - GENITAL HERPES [None]
  - VULVOVAGINAL PAIN [None]
  - CAESAREAN SECTION [None]
  - GESTATIONAL HYPERTENSION [None]
  - VAGINAL DISCHARGE [None]
  - PNEUMONITIS [None]
  - INTERNATIONAL NORMALISED RATIO DECREASED [None]
  - DEPRESSION [None]
  - PREGNANCY [None]
  - VAGINITIS BACTERIAL [None]
  - BRONCHIAL HYPERREACTIVITY [None]
  - GENE MUTATION [None]
